FAERS Safety Report 8792704 (Version 2)
Quarter: 2015Q1

REPORT INFORMATION
  Report Type: Report from Study
  Country: US (occurrence: US)
  Receive Date: 20120918
  Receipt Date: 20150316
  Transmission Date: 20150721
  Serious: Yes (Death)
  Sender: FDA-Public Use
  Company Number: US-ROCHE-1123684

PATIENT
  Sex: Female

DRUGS (25)
  1. LOMUSTINE. [Concomitant]
     Active Substance: LOMUSTINE
     Route: 065
  2. DILANTIN [Concomitant]
     Active Substance: PHENYTOIN
  3. NAPROXEN SODIUM. [Concomitant]
     Active Substance: NAPROXEN SODIUM
     Route: 048
  4. AZITHROMYCIN [Concomitant]
     Active Substance: AZITHROMYCIN ANHYDROUS
     Route: 065
  5. TEMODAR [Concomitant]
     Active Substance: TEMOZOLOMIDE
  6. ACETAMINOPHEN. [Concomitant]
     Active Substance: ACETAMINOPHEN
     Route: 048
  7. LEVETIRACETAM. [Concomitant]
     Active Substance: LEVETIRACETAM
     Dosage: 2 DAYS
     Route: 048
  8. LOMUSTINE. [Concomitant]
     Active Substance: LOMUSTINE
     Route: 065
  9. LOMUSTINE. [Concomitant]
     Active Substance: LOMUSTINE
     Route: 065
  10. PROCARBAZINE [Concomitant]
     Active Substance: PROCARBAZINE
     Route: 048
  11. DOXYLAMINE SUCCINATE [Concomitant]
     Active Substance: DOXYLAMINE SUCCINATE
     Route: 048
  12. EZETIMIBE. [Concomitant]
     Active Substance: EZETIMIBE
     Route: 048
  13. OMEPRAZOLE. [Concomitant]
     Active Substance: OMEPRAZOLE
     Route: 048
  14. KEPPRA [Concomitant]
     Active Substance: LEVETIRACETAM
  15. ONDANSETRON [Concomitant]
     Active Substance: ONDANSETRON
     Route: 065
  16. ZOFRAN [Concomitant]
     Active Substance: ONDANSETRON HYDROCHLORIDE
  17. AVASTIN [Suspect]
     Active Substance: BEVACIZUMAB
     Indication: BRAIN NEOPLASM MALIGNANT
     Route: 042
  18. CODEINE [Concomitant]
     Active Substance: CODEINE
     Route: 048
  19. HYDROCHLOROTHIAZIDE. [Concomitant]
     Active Substance: HYDROCHLOROTHIAZIDE
     Route: 048
  20. AMITRIPTYLINE [Concomitant]
     Active Substance: AMITRIPTYLINE
  21. LOSARTAN [Concomitant]
     Active Substance: LOSARTAN
     Route: 048
  22. TYLENOL [Concomitant]
     Active Substance: ACETAMINOPHEN
  23. ASPIRIN. [Concomitant]
     Active Substance: ASPIRIN
     Route: 048
  24. POTASSIUM CHLORIDE. [Concomitant]
     Active Substance: POTASSIUM CHLORIDE
     Route: 065
  25. DILANTIN [Concomitant]
     Active Substance: PHENYTOIN

REACTIONS (8)
  - Aphasia [Recovered/Resolved]
  - Arthralgia [Unknown]
  - Gingival pain [Unknown]
  - Dysstasia [Unknown]
  - Fatigue [Unknown]
  - Insomnia [Unknown]
  - Death [Fatal]
  - Somnolence [Unknown]
